FAERS Safety Report 9005490 (Version 1)
Quarter: 2013Q1

REPORT INFORMATION
  Report Type: Spontaneous
  Country: NO (occurrence: NO)
  Receive Date: 20130109
  Receipt Date: 20130109
  Transmission Date: 20140127
  Serious: Yes (Disabling, Other)
  Sender: FDA-Public Use
  Company Number: NO-PFIZER INC-2013001877

PATIENT
  Age: 37 Year
  Sex: Male
  Weight: 65 kg

DRUGS (3)
  1. XALATAN [Suspect]
     Indication: GLAUCOMA
     Dosage: 50 UG, 1X/DAY
     Dates: start: 20010202, end: 20101001
  2. FLUTIDE [Concomitant]
     Dates: start: 20010901
  3. SEREVENT [Concomitant]
     Dates: start: 20010901

REACTIONS (8)
  - Headache [Recovering/Resolving]
  - Myalgia [Recovering/Resolving]
  - Sensitivity of teeth [Recovering/Resolving]
  - Fatigue [Recovering/Resolving]
  - Hypersensitivity [Recovering/Resolving]
  - Disturbance in attention [Recovering/Resolving]
  - Arthralgia [Recovering/Resolving]
  - Asthma [Recovering/Resolving]
